FAERS Safety Report 18571527 (Version 1)
Quarter: 2020Q4

REPORT INFORMATION
  Report Type: Report from Study
  Country: US (occurrence: US)
  Receive Date: 20201202
  Receipt Date: 20201202
  Transmission Date: 20210114
  Serious: Yes (Other)
  Sender: FDA-Public Use
  Company Number: US-IGSA-BIG0012140

PATIENT
  Age: 17 Year
  Sex: Female
  Weight: 50.8 kg

DRUGS (1)
  1. GAMUNEX-C [Suspect]
     Active Substance: HUMAN IMMUNOGLOBULIN G
     Indication: PRIMARY IMMUNODEFICIENCY SYNDROME
     Dosage: 250 GRAM, Q.WK.
     Route: 042
     Dates: start: 202001

REACTIONS (5)
  - Meningitis aseptic [Recovered/Resolved]
  - Emotional disorder [Recovering/Resolving]
  - Nausea [Recovering/Resolving]
  - Weight fluctuation [Not Recovered/Not Resolved]
  - Headache [Recovering/Resolving]

NARRATIVE: CASE EVENT DATE: 202001
